FAERS Safety Report 7986236-1 (Version None)
Quarter: 2011Q4

REPORT INFORMATION
  Report Type: 
  Country: None (occurrence: None)
  Receive Date: 20111216
  Receipt Date: 20111208
  Transmission Date: 20120403
  Serious: Yes (Hospitalization)
  Sender: FDA-Public Use
  Company Number: DE-GLAXOSMITHKLINE-D0072904A

PATIENT
  Sex: Male
  Weight: 75 kg

DRUGS (6)
  1. TORSEMIDE [Concomitant]
     Dosage: 10MG PER DAY
     Route: 048
  2. FERROUS SULFATE TAB [Concomitant]
     Route: 048
  3. PROMACTA [Suspect]
     Indication: AUTOIMMUNE THROMBOCYTOPENIA
     Dosage: 50MG PER DAY
     Route: 048
     Dates: start: 20110101
  4. BENALAPRIL [Concomitant]
     Dosage: 5MG PER DAY
     Route: 048
  5. PREDNISOLONE [Concomitant]
     Dosage: 100MG PER DAY
     Route: 065
  6. ASPIRIN [Concomitant]
     Dosage: 100MG PER DAY
     Route: 048

REACTIONS (3)
  - DRUG INEFFECTIVE [None]
  - EPISTAXIS [None]
  - THROMBOCYTOPENIA [None]
